FAERS Safety Report 4417233-0 (Version None)
Quarter: 2004Q3

REPORT INFORMATION
  Report Type: 
  Country: None (occurrence: None)
  Receive Date: 20040802
  Receipt Date: 20040720
  Transmission Date: 20050211
  Serious: Yes (Other)
  Sender: FDA-Public Use
  Company Number: 2004049327

PATIENT
  Age: 75 Year
  Sex: Female
  Weight: 63.5036 kg

DRUGS (5)
  1. LIPITOR [Suspect]
     Indication: BLOOD CHOLESTEROL
     Dosage: 10 MG (10 MG, 1 IN 1 D), ORAL
     Route: 048
     Dates: start: 20020101, end: 20040601
  2. HYZAAR [Concomitant]
  3. DILTIAZEM [Concomitant]
  4. FEXOFENADINE HYDROCHLORIDE [Concomitant]
  5. VITAMINS (VITAMINS) [Concomitant]

REACTIONS (11)
  - CATARACT [None]
  - EYE HAEMORRHAGE [None]
  - EYE PAIN [None]
  - JOINT SPRAIN [None]
  - MYALGIA [None]
  - NECK PAIN [None]
  - PAIN IN EXTREMITY [None]
  - RETINAL DETACHMENT [None]
  - SINUS DISORDER [None]
  - VISUAL DISTURBANCE [None]
  - WEIGHT INCREASED [None]
